FAERS Safety Report 14307893 (Version 1)
Quarter: 2017Q4

REPORT INFORMATION
  Report Type: Spontaneous
  Country: JP (occurrence: JP)
  Receive Date: 20171220
  Receipt Date: 20171220
  Transmission Date: 20180321
  Serious: Yes (Other)
  Sender: FDA-Public Use
  Company Number: JP-ELI_LILLY_AND_COMPANY-JP201711005531

PATIENT
  Age: 66 Year
  Sex: Male

DRUGS (4)
  1. DOCETAXEL. [Suspect]
     Active Substance: DOCETAXEL
     Dosage: 50 MG/M2, CYCLICAL
     Route: 042
     Dates: start: 20170518, end: 20170914
  2. DOCETAXEL. [Suspect]
     Active Substance: DOCETAXEL
     Dosage: 40 MG/M2, CYCLICAL
     Route: 042
     Dates: start: 20171005, end: 20171026
  3. CYRAMZA [Suspect]
     Active Substance: RAMUCIRUMAB
     Indication: NON-SMALL CELL LUNG CANCER
     Dosage: 10 MG/KG, CYCLICAL
     Route: 042
     Dates: start: 20170406, end: 20171026
  4. DOCETAXEL. [Suspect]
     Active Substance: DOCETAXEL
     Indication: NON-SMALL CELL LUNG CANCER
     Dosage: 60 MG/M2, CYCLICAL
     Route: 042
     Dates: start: 20170406, end: 20170427

REACTIONS (2)
  - Neutropenia [Recovered/Resolved]
  - Metastases to meninges [Unknown]

NARRATIVE: CASE EVENT DATE: 201704
